FAERS Safety Report 8321903-1 (Version None)
Quarter: 2012Q2

REPORT INFORMATION
  Report Type: 
  Country: None (occurrence: None)
  Receive Date: 20120430
  Receipt Date: 20091123
  Transmission Date: 20120825
  Serious: No
  Sender: FDA-Public Use
  Company Number: US-TEVA-2009029240

PATIENT
  Age: 45 Year
  Sex: Male
  Weight: 89.892 kg

DRUGS (4)
  1. NUVIGIL [Suspect]
     Indication: NARCOLEPSY
     Dosage: 150 MILLIGRAM;
     Dates: start: 20091119, end: 20091119
  2. NUVIGIL [Suspect]
     Indication: SLEEP APNOEA SYNDROME
     Dosage: 250 MILLIGRAM;
     Dates: start: 20091120
  3. LAMICTAL XR [Concomitant]
     Indication: BIPOLAR DISORDER
     Dates: start: 20091001
  4. COZAAR [Concomitant]
     Indication: HYPERTENSION
     Dates: start: 20050101

REACTIONS (1)
  - DRUG INEFFECTIVE [None]
